FAERS Safety Report 7420953-7 (Version None)
Quarter: 2011Q2

REPORT INFORMATION
  Report Type: 
  Country: None (occurrence: None)
  Receive Date: 20110418
  Receipt Date: 20110411
  Transmission Date: 20111010
  Serious: Yes (Hospitalization)
  Sender: FDA-Public Use
  Company Number: B0713697A

PATIENT
  Sex: Female
  Weight: 55 kg

DRUGS (2)
  1. CENTYL MED KALIUMCHLORID [Concomitant]
     Route: 065
  2. ZYBAN [Suspect]
     Indication: SMOKING CESSATION THERAPY
     Route: 048
     Dates: start: 20110314, end: 20110403

REACTIONS (1)
  - ANGINA UNSTABLE [None]
